FAERS Safety Report 6081916-X (Version None)
Quarter: 2009Q1

REPORT INFORMATION
  Report Type: 
  Country: None (occurrence: None)
  Receive Date: 20090218
  Receipt Date: 20080527
  Transmission Date: 20090719
  Serious: No
  Sender: FDA-Public Use
  Company Number: US-BRISTOL-MYERS SQUIBB COMPANY-14207153

PATIENT
  Sex: Female

DRUGS (4)
  1. GLUCOPHAGE [Suspect]
  2. AVANDIA [Suspect]
     Dosage: TABLETS
  3. AMARYL [Suspect]
  4. INSULIN [Suspect]

REACTIONS (1)
  - HYPOGLYCAEMIA [None]
